FAERS Safety Report 13518997 (Version 2)
Quarter: 2017Q2

REPORT INFORMATION
  Report Type: Spontaneous
  Country: US (occurrence: US)
  Receive Date: 20170505
  Receipt Date: 20170509
  Transmission Date: 20170830
  Serious: Yes (Hospitalization, Other)
  Sender: FDA-Public Use
  Company Number: US-BRISTOL-MYERS SQUIBB COMPANY-BMS-2017-037289

PATIENT
  Age: 65 Year
  Sex: Male
  Weight: 99.2 kg

DRUGS (1)
  1. HYDREA [Suspect]
     Active Substance: HYDROXYUREA
     Indication: LEUKOCYTOSIS
     Dosage: 3 G, TID
     Route: 048
     Dates: start: 20170216, end: 20170221

REACTIONS (4)
  - Sepsis [Recovering/Resolving]
  - Cellulitis [Recovering/Resolving]
  - Product use in unapproved indication [Unknown]
  - Off label use [Unknown]

NARRATIVE: CASE EVENT DATE: 20170221
